FAERS Safety Report 6634650-9 (Version None)
Quarter: 2010Q1

REPORT INFORMATION
  Report Type: 
  Country: None (occurrence: None)
  Receive Date: 20100315
  Receipt Date: 20100308
  Transmission Date: 20100710
  Serious: Yes (Death, Hospitalization)
  Sender: FDA-Public Use
  Company Number: B0638247A

PATIENT
  Sex: Male

DRUGS (8)
  1. AUGMENTIN '125' [Suspect]
     Route: 048
     Dates: start: 20100103
  2. ASPEGIC 1000 [Suspect]
     Indication: DRUG USE FOR UNKNOWN INDICATION
     Dosage: 160MG PER DAY
     Route: 048
     Dates: start: 20100103
  3. LOVENOX [Suspect]
     Indication: DRUG USE FOR UNKNOWN INDICATION
     Route: 058
     Dates: start: 20100103, end: 20100202
  4. PROPOFOL [Suspect]
     Indication: SEDATION
     Route: 065
     Dates: start: 20100103
  5. LOXEN [Suspect]
     Indication: DRUG USE FOR UNKNOWN INDICATION
     Dosage: 1UNIT PER DAY
     Route: 048
     Dates: start: 20100101, end: 20100202
  6. KEPPRA [Suspect]
     Indication: DRUG USE FOR UNKNOWN INDICATION
     Dosage: 1UNIT PER DAY
     Route: 048
     Dates: start: 20100101, end: 20100202
  7. LIORESAL [Suspect]
     Indication: DRUG USE FOR UNKNOWN INDICATION
     Route: 048
     Dates: start: 20100101
  8. FENTANYL [Concomitant]
     Indication: SEDATION
     Route: 065

REACTIONS (14)
  - BLISTER [None]
  - CITROBACTER INFECTION [None]
  - ERYTHEMA MULTIFORME [None]
  - GENITAL EROSION [None]
  - MULTI-ORGAN FAILURE [None]
  - OXYGEN SATURATION DECREASED [None]
  - PNEUMONIA BACTERIAL [None]
  - PRURIGO [None]
  - PSEUDOMONAS INFECTION [None]
  - PYREXIA [None]
  - SEPTIC SHOCK [None]
  - SKIN DISORDER [None]
  - SKIN LESION [None]
  - TOXIC EPIDERMAL NECROLYSIS [None]
